FAERS Safety Report 5254211-6 (Version None)
Quarter: 2007Q1

REPORT INFORMATION
  Report Type: 
  Country: None (occurrence: None)
  Receive Date: 20070302
  Receipt Date: 20070220
  Transmission Date: 20070707
  Serious: Yes (Hospitalization)
  Sender: FDA-Public Use
  Company Number: DEWYE046627SEP06

PATIENT
  Sex: Female
  Weight: 70 kg

DRUGS (3)
  1. ENBREL [Suspect]
     Indication: PSORIASIS
     Route: 058
     Dates: start: 20060905, end: 20060915
  2. BETAMETHASONE [Concomitant]
     Indication: PSORIASIS
  3. PSORCUTAN [Concomitant]
     Indication: PSORIASIS

REACTIONS (1)
  - ERYTHRODERMIC PSORIASIS [None]
